FAERS Safety Report 18602408 (Version 1)
Quarter: 2020Q4

REPORT INFORMATION
  Report Type: Spontaneous
  Country: IT (occurrence: IT)
  Receive Date: 20201211
  Receipt Date: 20201211
  Transmission Date: 20210114
  Serious: Yes (Other)
  Sender: FDA-Public Use
  Company Number: IT-NOVAST LABORATORIES LTD.-2020NOV000340

PATIENT
  Age: 85 Year
  Sex: Female

DRUGS (3)
  1. ATORVASTATIN [Concomitant]
     Active Substance: ATORVASTATIN
     Indication: DYSLIPIDAEMIA
     Dosage: 40 MILLIGRAM, QD
     Route: 065
  2. ACETAZOLAMIDE. [Suspect]
     Active Substance: ACETAZOLAMIDE
     Indication: INTRAOCULAR PRESSURE INCREASED
     Dosage: 250 MILLIGRAM, QD, FOR 2 DAYS
     Route: 048
  3. DEXAMETHASONE. [Concomitant]
     Active Substance: DEXAMETHASONE
     Indication: INTRAOCULAR PRESSURE INCREASED
     Dosage: 0.1 PERCENT, QID FOR 1 WEEK
     Route: 031

REACTIONS (2)
  - Lens dislocation [Recovered/Resolved]
  - Choroidal detachment [Recovered/Resolved]
